FAERS Safety Report 8595981 (Version 2)
Quarter: 2013Q3

REPORT INFORMATION
  Report Type: Spontaneous
  Country: US (occurrence: US)
  Receive Date: 20120605
  Receipt Date: 20130723
  Transmission Date: 20140515
  Serious: Yes (Hospitalization, Disabling, Other)
  Sender: FDA-Public Use
  Company Number: US-ASTRAZENECA-2012SE34606

PATIENT
  Age: 39 Year
  Sex: Female

DRUGS (5)
  1. NEXIUM [Suspect]
     Route: 048
  2. PRILOSEC [Suspect]
     Route: 048
  3. PRILOSEC OTC [Suspect]
     Route: 048
  4. TUMS [Concomitant]
  5. MYLANTA [Concomitant]

REACTIONS (8)
  - Bone loss [Unknown]
  - Fall [Unknown]
  - Haematoma [Unknown]
  - Intervertebral discitis [Unknown]
  - Thyroid neoplasm [Unknown]
  - Depression [Unknown]
  - Osteoporosis [Unknown]
  - Foot fracture [Unknown]
